FAERS Safety Report 4517326-3 (Version None)
Quarter: 2004Q4

REPORT INFORMATION
  Report Type: 
  Country: None (occurrence: None)
  Receive Date: 20041007
  Receipt Date: 20040114
  Transmission Date: 20050328
  Serious: Yes (Other)
  Sender: FDA-Public Use
  Company Number: 2004-01-0788

PATIENT
  Age: 66 Year
  Sex: Female
  Weight: 67.1324 kg

DRUGS (8)
  1. TEMODAR [Suspect]
     Indication: ANAPLASTIC ASTROCYTOMA
     Dosage: 350-125MG QD ORAL
     Route: 048
     Dates: start: 20041229, end: 20040101
  2. TEMODAR [Suspect]
     Indication: ANAPLASTIC ASTROCYTOMA
     Dosage: 350-125MG QD ORAL
     Route: 048
     Dates: start: 20040204, end: 20040208
  3. TEMODAR [Suspect]
     Indication: ANAPLASTIC ASTROCYTOMA
     Dosage: 350-125MG QD ORAL
     Route: 048
     Dates: start: 20031118, end: 20041123
  4. RADIATION THERAPY [Suspect]
     Indication: ANAPLASTIC ASTROCYTOMA
     Dosage: X-RAY THERAPY
     Dates: start: 20031118, end: 20031231
  5. LOPRESSOR [Concomitant]
  6. SYNTHROID [Concomitant]
  7. PHENYTIOIN [Concomitant]
  8. ZONISAMIDE [Concomitant]

REACTIONS (2)
  - NEUTROPHIL COUNT DECREASED [None]
  - PLATELET COUNT DECREASED [None]
